FAERS Safety Report 5758609-9 (Version None)
Quarter: 2008Q2

REPORT INFORMATION
  Report Type: 
  Country: None (occurrence: None)
  Receive Date: 20080604
  Receipt Date: 20080530
  Transmission Date: 20081010
  Serious: Yes (Other)
  Sender: FDA-Public Use
  Company Number: B0523310A

PATIENT
  Age: 50 Year
  Sex: Male

DRUGS (2)
  1. OMACOR [Suspect]
     Route: 048
  2. PLAVIX [Concomitant]
     Route: 065

REACTIONS (1)
  - ATRIAL FIBRILLATION [None]
